FAERS Safety Report 21211226 (Version 1)
Quarter: 2022Q3

REPORT INFORMATION
  Report Type: Spontaneous
  Country: US (occurrence: None)
  Receive Date: 20220812
  Receipt Date: 20220812
  Transmission Date: 20221027
  Serious: No
  Sender: FDA-Public Use
  Company Number: None

PATIENT
  Sex: Female

DRUGS (1)
  1. AVONEX PEN [Suspect]
     Active Substance: INTERFERON BETA-1A
     Indication: Demyelination
     Dosage: 30MCG WEEKLY UNDER THE SKIN?
     Route: 058
     Dates: start: 20220812

REACTIONS (5)
  - Product dose omission in error [None]
  - Wrong technique in device usage process [None]
  - Hypoaesthesia [None]
  - Paraesthesia [None]
  - Balance disorder [None]
